FAERS Safety Report 5302620-9 (Version None)
Quarter: 2007Q2

REPORT INFORMATION
  Report Type: 
  Country: None (occurrence: None)
  Receive Date: 20070419
  Receipt Date: 20070411
  Transmission Date: 20071010
  Serious: Yes (Other)
  Sender: FDA-Public Use
  Company Number: NO-PFIZER INC-2007029549

PATIENT
  Sex: Male
  Weight: 92 kg

DRUGS (4)
  1. XANOR [Suspect]
     Indication: PANIC ATTACK
     Route: 048
  2. XANOR [Suspect]
     Indication: ANXIETY
  3. ALLOPUR [Concomitant]
     Indication: PAIN IN EXTREMITY
  4. ENTOCORT [Concomitant]
     Indication: CROHN'S DISEASE

REACTIONS (5)
  - HYPERTENSION [None]
  - MEMORY IMPAIRMENT [None]
  - OEDEMA [None]
  - OLIGURIA [None]
  - WEIGHT INCREASED [None]
